FAERS Safety Report 19353107 (Version 1)
Quarter: 2021Q2

REPORT INFORMATION
  Report Type: Report from Study
  Country: BR (occurrence: BR)
  Receive Date: 20210531
  Receipt Date: 20210531
  Transmission Date: 20210717
  Serious: Yes (Other)
  Sender: FDA-Public Use
  Company Number: NVSC2021BR115656

PATIENT
  Age: 62 Year
  Sex: Female

DRUGS (1)
  1. KISQALI [Suspect]
     Active Substance: RIBOCICLIB
     Indication: PRODUCT USED FOR UNKNOWN INDICATION
     Dosage: UNK
     Route: 065
     Dates: start: 20210324

REACTIONS (16)
  - Blood urea increased [Recovered/Resolved]
  - Renal impairment [Unknown]
  - Dyspepsia [Unknown]
  - Abdominal distension [Recovered/Resolved]
  - Dehydration [Unknown]
  - Gastrooesophageal reflux disease [Recovered/Resolved]
  - Malaise [Recovered/Resolved]
  - Nausea [Recovered/Resolved]
  - Diarrhoea [Recovered/Resolved]
  - Blood creatine increased [Not Recovered/Not Resolved]
  - Weight decreased [Not Recovered/Not Resolved]
  - Feeding disorder [Unknown]
  - Eructation [Unknown]
  - Dysphagia [Unknown]
  - Throat irritation [Recovered/Resolved]
  - Feeling abnormal [Unknown]

NARRATIVE: CASE EVENT DATE: 20210510
